FAERS Safety Report 24915706 (Version 2)
Quarter: 2025Q1

REPORT INFORMATION
  Report Type: Spontaneous
  Country: US (occurrence: US)
  Receive Date: 20250203
  Receipt Date: 20250303
  Transmission Date: 20250409
  Serious: No
  Sender: ELI LILLY AND COMPANY
  Company Number: US-ELI_LILLY_AND_COMPANY-US202502000561

PATIENT
  Age: 68 Year
  Sex: Female

DRUGS (3)
  1. FORTEO [Suspect]
     Active Substance: TERIPARATIDE
     Indication: Osteoporosis
     Dosage: 20 UNK, UNKNOWN
     Route: 065
     Dates: start: 20241122
  2. FORTEO [Suspect]
     Active Substance: TERIPARATIDE
     Indication: Osteoporosis
     Dosage: 20 UNK, UNKNOWN
     Route: 065
     Dates: start: 20241122
  3. FORTEO [Suspect]
     Active Substance: TERIPARATIDE
     Dosage: 20 UG, DAILY
     Route: 065

REACTIONS (7)
  - Incorrect dose administered [Unknown]
  - Feeling abnormal [Unknown]
  - Gastrooesophageal reflux disease [Unknown]
  - Oropharyngeal discomfort [Unknown]
  - Paranasal sinus discomfort [Unknown]
  - Eating disorder [Unknown]
  - Headache [Unknown]

NARRATIVE: CASE EVENT DATE: 20250130
